FAERS Safety Report 15083264 (Version 1)
Quarter: 2018Q2

REPORT INFORMATION
  Report Type: Spontaneous
  Country: IT (occurrence: IT)
  Receive Date: 20180628
  Receipt Date: 20180628
  Transmission Date: 20180711
  Serious: Yes (Other)
  Sender: FDA-Public Use
  Company Number: IT-AMNEAL PHARMACEUTICALS COMPANY GMBH-2018AGH00006

PATIENT
  Age: 69 Year
  Sex: Female

DRUGS (1)
  1. TRIAMCINOLONE ACETONIDE. [Suspect]
     Active Substance: TRIAMCINOLONE ACETONIDE
     Indication: BACK PAIN
     Dosage: UNK
     Route: 030

REACTIONS (3)
  - Hypertension [Recovered/Resolved]
  - Cushingoid [Recovered/Resolved]
  - Cushing^s syndrome [Recovered/Resolved]
